FAERS Safety Report 8311363-9 (Version None)
Quarter: 2012Q2

REPORT INFORMATION
  Report Type: 
  Country: None (occurrence: None)
  Receive Date: 20120425
  Receipt Date: 20120418
  Transmission Date: 20120825
  Serious: Yes (Other)
  Sender: FDA-Public Use
  Company Number: CHPA2012US005264

PATIENT
  Age: 54 Year
  Sex: Female

DRUGS (2)
  1. POTASSIUM SUPPLEMENTS [Concomitant]
     Dosage: UNK
     Dates: start: 20120315
  2. PREVACID 24 HR [Suspect]
     Indication: GASTROOESOPHAGEAL REFLUX DISEASE
     Dosage: 15 MG, QD
     Route: 048
     Dates: start: 20110101

REACTIONS (3)
  - INCORRECT DRUG ADMINISTRATION DURATION [None]
  - OFF LABEL USE [None]
  - BENIGN NEOPLASM [None]
